FAERS Safety Report 17201518 (Version 1)
Quarter: 2019Q4

REPORT INFORMATION
  Report Type: Spontaneous
  Country: US (occurrence: US)
  Receive Date: 20191203
  Receipt Date: 20191203
  Transmission Date: 20200122
  Serious: Yes (Disabling)
  Sender: FDA-Public Use
  Company Number: None

PATIENT
  Age: 81 Year
  Sex: Female
  Weight: 63.5 kg

DRUGS (1)
  1. TRIESENCE [Suspect]
     Active Substance: TRIAMCINOLONE ACETONIDE
     Indication: CYSTOID MACULAR OEDEMA
     Dates: start: 20190109

REACTIONS (3)
  - Vision blurred [None]
  - Vitreous floaters [None]
  - Blindness [None]

NARRATIVE: CASE EVENT DATE: 20190109
